FAERS Safety Report 4711910-X (Version None)
Quarter: 2005Q2

REPORT INFORMATION
  Report Type: 
  Country: None (occurrence: None)
  Receive Date: 20050629
  Receipt Date: 20050509
  Transmission Date: 20051028
  Serious: No
  Sender: FDA-Public Use
  Company Number: 05P-163-0300115-00

PATIENT
  Age: 78 Year
  Sex: Female
  Weight: 49.8957 kg

DRUGS (7)
  1. HUMIRA [Suspect]
     Indication: RHEUMATOID ARTHRITIS
     Dosage: 40 MG, 1 IN 2 WK, SUBCUTANEOUS
     Route: 058
     Dates: start: 20050425
  2. LEVOTHYROXINE SODIUM [Concomitant]
  3. AMLODIPINE BESYLATE [Concomitant]
  4. BENICAR [Concomitant]
  5. MYOCALCIN [Concomitant]
  6. METHYLPREDNISOLONE 16MG TAB [Concomitant]
  7. ESOMEPRAZOLE [Concomitant]

REACTIONS (3)
  - INJECTION SITE IRRITATION [None]
  - MUSCLE SPASMS [None]
  - PARAESTHESIA [None]
